FAERS Safety Report 7865020-3 (Version None)
Quarter: 2011Q4

REPORT INFORMATION
  Report Type: 
  Country: None (occurrence: None)
  Receive Date: 20111028
  Receipt Date: 20101001
  Transmission Date: 20120403
  Serious: No
  Sender: FDA-Public Use
  Company Number: US-GLAXOSMITHKLINE-A0884491A

PATIENT
  Sex: Female

DRUGS (5)
  1. ADVAIR DISKUS 100/50 [Suspect]
     Indication: CHRONIC OBSTRUCTIVE PULMONARY DISEASE
     Dosage: 1PUFF TWICE PER DAY
     Route: 055
     Dates: start: 20100916, end: 20100919
  2. SYNTHROID [Concomitant]
  3. STATINS [Concomitant]
  4. METHOTREXATE [Concomitant]
  5. FOLIC [Concomitant]

REACTIONS (1)
  - DYSPEPSIA [None]
